FAERS Safety Report 4620884-1 (Version None)
Quarter: 2005Q1

REPORT INFORMATION
  Report Type: 
  Country: None (occurrence: None)
  Receive Date: 20050325
  Receipt Date: 20050315
  Transmission Date: 20050727
  Serious: Yes (Death)
  Sender: FDA-Public Use
  Company Number: S05-USA-00560-01

PATIENT
  Age: 44 Year
  Sex: Female

DRUGS (3)
  1. LEXAPRO [Suspect]
     Indication: DEPRESSION
     Dates: start: 20030101, end: 20050101
  2. ETHYL ALCOHOL [Concomitant]
  3. DIPHENHYDRAMINE HCL [Concomitant]

REACTIONS (7)
  - ANTIDEPRESSANT DRUG LEVEL INCREASED [None]
  - BLOOD ALCOHOL INCREASED [None]
  - CARBOXYHAEMOGLOBIN INCREASED [None]
  - COMPLETED SUICIDE [None]
  - OVERDOSE [None]
  - SELF INJURIOUS BEHAVIOUR [None]
  - THERMAL BURN [None]
